FAERS Safety Report 7486307-2 (Version None)
Quarter: 2011Q2

REPORT INFORMATION
  Report Type: 
  Country: None (occurrence: None)
  Receive Date: 20110517
  Receipt Date: 20110511
  Transmission Date: 20111010
  Serious: Yes (Hospitalization, Other)
  Sender: FDA-Public Use
  Company Number: JP-PFIZER INC-2010041740

PATIENT
  Age: 13 Year
  Sex: Male
  Weight: 28.2 kg

DRUGS (13)
  1. LEVOTHYROXINE SODIUM [Concomitant]
     Dosage: 125 UG, 1X/DAY
     Route: 048
     Dates: start: 20070906
  2. CORTRIL [Concomitant]
     Indication: SECONDARY ADRENOCORTICAL INSUFFICIENCY
     Dosage: 15 MG, 1X/DAY
     Route: 048
     Dates: start: 20070906
  3. SOMATROPIN RDNA [Suspect]
     Dosage: 7.0 MG/ 7 TIMES X/WEEK
     Route: 058
     Dates: start: 20071129
  4. SOMATROPIN RDNA [Suspect]
     Dosage: 8.4 MG/ 7 TIMES X/WEEK
     Route: 058
     Dates: start: 20090507, end: 20090511
  5. LEVOTHYROXINE SODIUM [Concomitant]
     Indication: HYPOTHYROIDISM
     Dosage: 100 UG, 1X/DAY
     Route: 048
     Dates: start: 20041213
  6. SOMATROPIN RDNA [Suspect]
     Indication: HYPOPITUITARISM
     Dosage: 0.8 MG, 1X/DAY
     Route: 058
     Dates: start: 20030806, end: 20041114
  7. SOMATROPIN RDNA [Suspect]
     Dosage: 4.8 MG/6 TIMES X/WEEK
     Route: 058
     Dates: start: 20041115, end: 20051211
  8. FOLLITROPIN ALFA [Concomitant]
     Dosage: 25 IU, WEEKLY
     Route: 058
     Dates: start: 20090115
  9. TESTOSTERONE ENANTATE [Concomitant]
     Indication: HYPOGONADISM
     Dosage: UNK
     Dates: start: 20071129
  10. GONATROPIN [Concomitant]
     Dosage: 500 IU, WEEKLY
     Route: 058
     Dates: start: 20090312
  11. SOMATROPIN RDNA [Suspect]
     Dosage: 5.6 MG/7 TIMES X/WEEK
     Route: 058
     Dates: start: 20051212, end: 20071128
  12. SOMATROPIN RDNA [Suspect]
     Dosage: 1.2 MG/ 7 TIMES X/WEEK
     Route: 058
     Dates: start: 20100128, end: 20100523
  13. PROFASI HP [Concomitant]
     Dosage: 500 IU, WEEKLY
     Route: 058
     Dates: start: 20090115, end: 20090311

REACTIONS (2)
  - NEOPLASM RECURRENCE [None]
  - CRANIOPHARYNGIOMA [None]
